FAERS Safety Report 6701941-2 (Version None)
Quarter: 2010Q2

REPORT INFORMATION
  Report Type: 
  Country: None (occurrence: None)
  Receive Date: 20100429
  Receipt Date: 20100423
  Transmission Date: 20101027
  Serious: Yes (Death)
  Sender: FDA-Public Use
  Company Number: GR-SANOFI-AVENTIS-2010SA023957

PATIENT
  Age: 80 Year
  Sex: Male
  Weight: 50 kg

DRUGS (4)
  1. TAXOTERE [Suspect]
     Indication: PROSTATE CANCER METASTATIC
     Route: 042
     Dates: start: 20091113, end: 20091203
  2. ERBITUX [Concomitant]
     Indication: PROSTATE CANCER METASTATIC
     Route: 042
     Dates: start: 20091030, end: 20091217
  3. PREDNISONE [Concomitant]
     Indication: PROSTATE CANCER METASTATIC
     Route: 048
     Dates: start: 20091113, end: 20091220
  4. FENTANYL [Concomitant]
     Indication: PROSTATE CANCER METASTATIC
     Route: 062
     Dates: start: 20091030, end: 20091221

REACTIONS (1)
  - ACUTE RESPIRATORY FAILURE [None]
